FAERS Safety Report 7591656-3 (Version None)
Quarter: 2011Q3

REPORT INFORMATION
  Report Type: 
  Country: None (occurrence: None)
  Receive Date: 20110706
  Receipt Date: 20081001
  Transmission Date: 20111222
  Serious: Yes (Other)
  Sender: FDA-Public Use
  Company Number: US-BAYER-2011-008789

PATIENT
  Age: 59 Year
  Sex: Male
  Weight: 114.74 kg

DRUGS (13)
  1. LISINOPRIL [Concomitant]
     Dosage: UNK
     Dates: start: 19980101, end: 20010101
  2. CLONIDINE [Concomitant]
     Dosage: UNK
     Dates: start: 19930101
  3. PEPCID [Concomitant]
     Dosage: UNK
     Dates: start: 19980101, end: 20000101
  4. LOTENSIN [Concomitant]
     Dosage: UNK
     Dates: start: 19970101, end: 19980101
  5. PRILOSEC [Concomitant]
     Dosage: UNK
     Dates: start: 19980101
  6. ZANTAC [Concomitant]
     Dosage: UNK
     Dates: start: 19930101
  7. CEFTIN [Concomitant]
     Dosage: UNK
     Dates: start: 19980101
  8. TRASYLOL [Suspect]
     Indication: CORONARY ARTERY BYPASS
     Dosage: UNK
     Route: 042
     Dates: start: 19980512
  9. HYTRIN [Concomitant]
     Dosage: UNK
     Dates: start: 19970101, end: 19980101
  10. ACCUPRIL [Concomitant]
     Dosage: 20 MG DAILY
     Dates: start: 19970101
  11. LASIX [Concomitant]
     Dosage: UNK
     Dates: start: 19980101, end: 20030101
  12. PRINIVIL [Concomitant]
     Dosage: UNK
     Dates: start: 19980101
  13. VERPAMIL HCL [Concomitant]
     Dosage: 240 MG, BID
     Dates: start: 19930101

REACTIONS (7)
  - PAIN [None]
  - INJURY [None]
  - STRESS [None]
  - RENAL FAILURE [None]
  - EMOTIONAL DISTRESS [None]
  - ANXIETY [None]
  - DEPRESSION [None]
